FAERS Safety Report 11213850 (Version 1)
Quarter: 2015Q2

REPORT INFORMATION
  Report Type: Spontaneous
  Country: FR (occurrence: FR)
  Receive Date: 20150623
  Receipt Date: 20150623
  Transmission Date: 20150821
  Serious: Yes (Hospitalization)
  Sender: FDA-Public Use
  Company Number: FR-BIAL, PORTELA + CA S.A.-BIAL-02977

PATIENT
  Age: 56 Year
  Sex: Female

DRUGS (8)
  1. ZEBINIX (ESLICARBAZEPINE ACETATE) [Suspect]
     Active Substance: ESLICARBAZEPINE ACETATE
     Indication: PROPHYLAXIS
     Dosage: UNK
     Route: 048
     Dates: start: 20150319, end: 20150325
  2. SOLU-MEDROL [Suspect]
     Active Substance: METHYLPREDNISOLONE SODIUM SUCCINATE
     Indication: INTRACRANIAL PRESSURE INCREASED
     Dosage: UNK
     Route: 042
     Dates: start: 20150323, end: 20150325
  3. STILNOX [Concomitant]
     Active Substance: ZOLPIDEM TARTRATE
  4. DEXERYL /01579901/ [Concomitant]
     Active Substance: GLYCERIN\PARAFFIN
  5. INEXIUM /01479302/ [Concomitant]
     Active Substance: ESOMEPRAZOLE MAGNESIUM
  6. DIFFU K [Concomitant]
     Active Substance: POTASSIUM CHLORIDE
  7. ACUPAN [Concomitant]
     Active Substance: NEFOPAM HYDROCHLORIDE
  8. FRAGMINE [Concomitant]
     Active Substance: DALTEPARIN SODIUM

REACTIONS (2)
  - Pancreatitis acute [Recovered/Resolved]
  - Off label use [Unknown]

NARRATIVE: CASE EVENT DATE: 20150319
